FAERS Safety Report 24936462 (Version 4)
Quarter: 2025Q2

REPORT INFORMATION
  Report Type: Spontaneous
  Country: JP (occurrence: JP)
  Receive Date: 20250206
  Receipt Date: 20250602
  Transmission Date: 20250716
  Serious: No
  Sender: ASTELLAS
  Company Number: JP-ASTELLAS-2024-AER-005113

PATIENT
  Age: 51 Year
  Sex: Female
  Weight: 58 kg

DRUGS (13)
  1. VYLOY [Suspect]
     Active Substance: ZOLBETUXIMAB-CLZB
     Indication: Gastric cancer
     Route: 042
     Dates: start: 20240905, end: 20240905
  2. VYLOY [Suspect]
     Active Substance: ZOLBETUXIMAB-CLZB
     Indication: Gastric cancer
     Route: 042
     Dates: start: 20241003
  3. CAPECITABINE [Concomitant]
     Active Substance: CAPECITABINE
     Indication: Product used for unknown indication
     Route: 065
     Dates: start: 20240905
  4. OXALIPLATIN [Concomitant]
     Active Substance: OXALIPLATIN
     Indication: Product used for unknown indication
     Route: 065
     Dates: start: 20240905
  5. Primperan Injection 10mg [Concomitant]
     Indication: Nausea
     Route: 065
     Dates: start: 20240905
  6. Primperan Injection 10mg [Concomitant]
     Route: 065
     Dates: start: 20241003
  7. Primperan Injection 10mg [Concomitant]
     Route: 065
     Dates: start: 20241024
  8. Atarax P Parenteral Solution 25mg [Concomitant]
     Indication: Nausea
     Route: 065
     Dates: start: 20240905
  9. Atarax P Parenteral Solution 25mg [Concomitant]
     Route: 065
     Dates: start: 20241003
  10. MERCAZOLE Tablets [Concomitant]
     Indication: Product used for unknown indication
     Route: 048
     Dates: start: 20240822
  11. THYRADIN S Tablets [Concomitant]
     Indication: Product used for unknown indication
     Route: 048
     Dates: start: 20240822
  12. ESOMEPRAZOLE Capsules [Concomitant]
     Indication: Product used for unknown indication
     Route: 048
     Dates: start: 20240822
  13. DAYVIGO Tablets [Concomitant]
     Indication: Product used for unknown indication
     Route: 048
     Dates: start: 20240822

REACTIONS (3)
  - Nausea [Recovered/Resolved]
  - Nausea [Recovered/Resolved]
  - Nausea [Recovered/Resolved]

NARRATIVE: CASE EVENT DATE: 20240905
